FAERS Safety Report 16847370 (Version 4)
Quarter: 2021Q1

REPORT INFORMATION
  Report Type: Spontaneous
  Country: US (occurrence: US)
  Receive Date: 20190924
  Receipt Date: 20210205
  Transmission Date: 20210419
  Serious: Yes (Other)
  Sender: FDA-Public Use
  Company Number: US-GILEAD-2019-0429823

PATIENT
  Age: 54 Year
  Sex: Male
  Weight: 83.9 kg

DRUGS (64)
  1. CETIRIZINE [Concomitant]
     Active Substance: CETIRIZINE HYDROCHLORIDE
  2. CHLORTHALIDONE. [Concomitant]
     Active Substance: CHLORTHALIDONE
  3. CITALOPRAM [Concomitant]
     Active Substance: CITALOPRAM HYDROBROMIDE
  4. ONDANSETRON [Concomitant]
     Active Substance: ONDANSETRON
  5. TRIAMCINOLON [TRIAMCINOLONE ACETONIDE] [Concomitant]
  6. BUMETANIDE. [Concomitant]
     Active Substance: BUMETANIDE
  7. TRUVADA [Suspect]
     Active Substance: EMTRICITABINE\TENOFOVIR DISOPROXIL FUMARATE
     Indication: HIV INFECTION
     Dosage: UNK
     Route: 048
     Dates: start: 2008, end: 2017
  8. EPIVIR [Concomitant]
     Active Substance: LAMIVUDINE
  9. TRIZIVIR [Concomitant]
     Active Substance: ABACAVIR SULFATE\LAMIVUDINE\ZIDOVUDINE
  10. ABACAVIR. [Concomitant]
     Active Substance: ABACAVIR
  11. DIPHENHYDRAMINE. [Concomitant]
     Active Substance: DIPHENHYDRAMINE
  12. DOCUSATE [Concomitant]
     Active Substance: DOCUSATE
  13. PREZISTA [Concomitant]
     Active Substance: DARUNAVIR ETHANOLATE
  14. ADVAIR HFA [Concomitant]
     Active Substance: FLUTICASONE PROPIONATE\SALMETEROL XINAFOATE
  15. FEXOFENADINE [Concomitant]
     Active Substance: FEXOFENADINE HYDROCHLORIDE
  16. GLIPIZIDE. [Concomitant]
     Active Substance: GLIPIZIDE
  17. KETOCONAZOLE. [Concomitant]
     Active Substance: KETOCONAZOLE
  18. L?METHYLFOLATE [Concomitant]
     Active Substance: LEVOMEFOLIC ACID
  19. METFORMIN [Concomitant]
     Active Substance: METFORMIN HYDROCHLORIDE
  20. MIRTAZAPINE. [Concomitant]
     Active Substance: MIRTAZAPINE
  21. VITAMIN D3 [Concomitant]
     Active Substance: CHOLECALCIFEROL
  22. BANOPHEN [Concomitant]
     Active Substance: DIPHENHYDRAMINE HYDROCHLORIDE
  23. EPZICOM [Concomitant]
     Active Substance: ABACAVIR SULFATE\LAMIVUDINE
  24. ACETAMINOPHEN. [Concomitant]
     Active Substance: ACETAMINOPHEN
  25. AMLODIPINE [Concomitant]
     Active Substance: AMLODIPINE BESYLATE
  26. HYDROXYZINE [Concomitant]
     Active Substance: HYDROXYZINE HYDROCHLORIDE
  27. JANUVIA [Concomitant]
     Active Substance: SITAGLIPTIN PHOSPHATE
  28. MULTIVITAMIN (16) [Concomitant]
     Active Substance: VITAMINS
  29. OXYCODONE [Concomitant]
     Active Substance: OXYCODONE
  30. PEG 3350 + ELECTROLYTES [Concomitant]
  31. TRICOR [ADENOSINE] [Concomitant]
     Active Substance: ADENOSINE
  32. TRIMETHOPRIM. [Concomitant]
     Active Substance: TRIMETHOPRIM
  33. ASPIRIN 81 [Concomitant]
     Active Substance: ASPIRIN
  34. VIREAD [Suspect]
     Active Substance: TENOFOVIR DISOPROXIL FUMARATE
     Indication: HIV INFECTION
     Dosage: UNK
     Route: 048
     Dates: start: 2008, end: 2014
  35. NORVIR [Concomitant]
     Active Substance: RITONAVIR
  36. ZIAGEN [Concomitant]
     Active Substance: ABACAVIR SULFATE
  37. AMITRIPTYLINE [Concomitant]
     Active Substance: AMITRIPTYLINE
  38. ASPIRIN [ACETYLSALICYLIC ACID] [Concomitant]
     Active Substance: ASPIRIN
  39. ATENOLOL. [Concomitant]
     Active Substance: ATENOLOL
  40. LAMIVUDINE. [Concomitant]
     Active Substance: LAMIVUDINE
  41. LISINOPRIL. [Concomitant]
     Active Substance: LISINOPRIL
  42. LOPERAMIDE [Concomitant]
     Active Substance: LOPERAMIDE
  43. PERMETHRIN. [Concomitant]
     Active Substance: PERMETHRIN
  44. VENTOLIN [Concomitant]
     Active Substance: ALBUTEROL SULFATE
  45. CODEINE [Concomitant]
     Active Substance: CODEINE
  46. GABAPENTIN. [Concomitant]
     Active Substance: GABAPENTIN
  47. PRAVASTATIN. [Concomitant]
     Active Substance: PRAVASTATIN
  48. PREDNISONE. [Concomitant]
     Active Substance: PREDNISONE
  49. RENVELA [Concomitant]
     Active Substance: SEVELAMER CARBONATE
  50. RISPERIDONE. [Concomitant]
     Active Substance: RISPERIDONE
  51. ATORVASTATIN [Concomitant]
     Active Substance: ATORVASTATIN
  52. METOPROLOL. [Concomitant]
     Active Substance: METOPROLOL
  53. ALLOPURINOL. [Concomitant]
     Active Substance: ALLOPURINOL
  54. ISENTRESS [Concomitant]
     Active Substance: RALTEGRAVIR POTASSIUM
  55. IMODIUM [Concomitant]
     Active Substance: LOPERAMIDE HYDROCHLORIDE
  56. ANDROGEL [Concomitant]
     Active Substance: TESTOSTERONE
  57. FENOFIBRATE. [Concomitant]
     Active Substance: FENOFIBRATE
  58. FERROUS SULFATE. [Concomitant]
     Active Substance: FERROUS SULFATE
  59. SMZ?TMP [Concomitant]
     Active Substance: SULFAMETHOXAZOLE\TRIMETHOPRIM
  60. JULUCA [Concomitant]
     Active Substance: DOLUTEGRAVIR SODIUM\RILPIVIRINE HYDROCHLORIDE
  61. CYCLOBENZAPRINE. [Concomitant]
     Active Substance: CYCLOBENZAPRINE
  62. FLUOXETINE [Concomitant]
     Active Substance: FLUOXETINE HYDROCHLORIDE
  63. HYDRALAZINE [Concomitant]
     Active Substance: HYDRALAZINE HYDROCHLORIDE
  64. HUMULIN R [Concomitant]
     Active Substance: INSULIN HUMAN

REACTIONS (11)
  - Loss of personal independence in daily activities [Not Recovered/Not Resolved]
  - Decreased activity [Not Recovered/Not Resolved]
  - Anhedonia [Not Recovered/Not Resolved]
  - Emotional distress [Not Recovered/Not Resolved]
  - Economic problem [Not Recovered/Not Resolved]
  - Impaired work ability [Not Recovered/Not Resolved]
  - Chronic kidney disease [Not Recovered/Not Resolved]
  - Pollakiuria [Not Recovered/Not Resolved]
  - Quality of life decreased [Not Recovered/Not Resolved]
  - Pain [Not Recovered/Not Resolved]
  - Anxiety [Not Recovered/Not Resolved]

NARRATIVE: CASE EVENT DATE: 2011
